FAERS Safety Report 5670263-3 (Version None)
Quarter: 2008Q1

REPORT INFORMATION
  Report Type: 
  Country: None (occurrence: None)
  Receive Date: 20080318
  Receipt Date: 20080317
  Transmission Date: 20080703
  Serious: Yes (Death)
  Sender: FDA-Public Use
  Company Number: GB-JNJFOC-20080206345

PATIENT
  Age: 5 Decade
  Sex: Female

DRUGS (4)
  1. RISPERDAL CONSTA [Suspect]
     Indication: DRUG USE FOR UNKNOWN INDICATION
     Route: 030
  2. DEPIXOL [Concomitant]
     Indication: DRUG USE FOR UNKNOWN INDICATION
     Route: 030
  3. CITALOPRAM [Concomitant]
     Route: 048
  4. METFORMIN HCL [Concomitant]
     Route: 048

REACTIONS (2)
  - DYSPNOEA [None]
  - PULMONARY EMBOLISM [None]
